FAERS Safety Report 12982495 (Version 1)
Quarter: 2016Q4

REPORT INFORMATION
  Report Type: Spontaneous
  Country: US (occurrence: US)
  Receive Date: 20161128
  Receipt Date: 20161128
  Transmission Date: 20170207
  Serious: No
  Sender: FDA-Public Use
  Company Number: None

PATIENT
  Age: 62 Year
  Sex: Female
  Weight: 64.8 kg

DRUGS (5)
  1. CENTRUM SILVER MULTIVITAMIN FOR 50+ [Concomitant]
  2. LAMICTAL [Concomitant]
     Active Substance: LAMOTRIGINE
  3. TRINTELLIX [Concomitant]
     Active Substance: VORTIOXETINE HYDROBROMIDE
  4. VITAMIN D [Concomitant]
     Active Substance: CHOLECALCIFEROL
  5. ATORVASTATIN [Suspect]
     Active Substance: ATORVASTATIN
     Indication: BLOOD CHOLESTEROL INCREASED
     Route: 048
     Dates: start: 20160902, end: 20161111

REACTIONS (14)
  - Constipation [None]
  - Influenza like illness [None]
  - Fatigue [None]
  - Myalgia [None]
  - Depression [None]
  - Hypotension [None]
  - Feeling abnormal [None]
  - Drug intolerance [None]
  - Insomnia [None]
  - Activities of daily living impaired [None]
  - Asthenia [None]
  - Fear [None]
  - Rash [None]
  - Adverse drug reaction [None]

NARRATIVE: CASE EVENT DATE: 20160912
